FAERS Safety Report 10241021 (Version 2)
Quarter: 2014Q2

REPORT INFORMATION
  Report Type: Spontaneous
  Country: CH (occurrence: CH)
  Receive Date: 20140617
  Receipt Date: 20140617
  Transmission Date: 20141212
  Serious: Yes (Other)
  Sender: FDA-Public Use
  Company Number: CH-ASTELLAS-2014EU005993

PATIENT
  Age: 81 Year
  Sex: Male

DRUGS (3)
  1. XTANDI [Suspect]
     Indication: PROSTATE CANCER METASTATIC
     Dosage: UNK UNK, UNKNOWN FREQ.
     Route: 048
     Dates: start: 20140430
  2. XTANDI [Suspect]
     Dosage: 80 MG, UNK
  3. PREDNISOL                          /00016201/ [Concomitant]
     Indication: NEOPLASM MALIGNANT
     Dosage: UNK UNK, ONCE DAILY
     Route: 048

REACTIONS (2)
  - Delirium [Unknown]
  - Confusional state [Unknown]
